FAERS Safety Report 8363974-2 (Version None)
Quarter: 2012Q2

REPORT INFORMATION
  Report Type: 
  Country: None (occurrence: None)
  Receive Date: 20120516
  Receipt Date: 20120514
  Transmission Date: 20120825
  Serious: Yes (Hospitalization, Other)
  Sender: FDA-Public Use
  Company Number: FR-ROXANE LABORATORIES, INC.-2012-RO-01228RO

PATIENT
  Age: 9 Year
  Sex: Male
  Weight: 30 kg

DRUGS (4)
  1. METHYLPHENIDATE [Suspect]
     Indication: PSYCHOMOTOR HYPERACTIVITY
     Dosage: 36 NR
  2. METHYLPHENIDATE [Suspect]
     Indication: AGGRESSION
     Dosage: 20 MG
  3. RISPERIDONE [Suspect]
     Indication: AGGRESSION
     Dosage: 2 MG
  4. RISPERIDONE [Suspect]
     Indication: PSYCHOMOTOR HYPERACTIVITY

REACTIONS (4)
  - DEHYDRATION [None]
  - HYPERTHERMIA [None]
  - DYSTONIA [None]
  - BLOOD CREATINE PHOSPHOKINASE INCREASED [None]
